FAERS Safety Report 4910153-4 (Version None)
Quarter: 2006Q1

REPORT INFORMATION
  Report Type: 
  Country: None (occurrence: None)
  Receive Date: 20060209
  Receipt Date: 20060127
  Transmission Date: 20060701
  Serious: Yes (Death, Hospitalization)
  Sender: FDA-Public Use
  Company Number: L05-USA-03935-25

PATIENT
  Age: 81 Year
  Sex: Male

DRUGS (12)
  1. DILTIAZEM [Suspect]
  2. INDOMETHACIN [Suspect]
  3. DIGOXIN [Suspect]
  4. ACETAMINOPHEN W/ PROPOXYPHENE HCL [Suspect]
  5. CLONIDINE [Suspect]
  6. CAPTOPRIL [Suspect]
  7. CLONAZEPAM [Suspect]
  8. LORAZEPAM [Suspect]
  9. ALBUTEROL [Suspect]
  10. ALLOPURINOL [Suspect]
  11. FUROSEMIDE [Suspect]
  12. CLOPIDOGREL [Suspect]

REACTIONS (12)
  - ATRIOVENTRICULAR BLOCK FIRST DEGREE [None]
  - BLOOD GLUCOSE INCREASED [None]
  - BLOOD POTASSIUM INCREASED [None]
  - BLOOD PRESSURE DIASTOLIC DECREASED [None]
  - CARDIAC FAILURE [None]
  - COMPLETED SUICIDE [None]
  - DRUG LEVEL INCREASED [None]
  - ELECTROCARDIOGRAM REPOLARISATION ABNORMALITY [None]
  - HEART RATE DECREASED [None]
  - LOSS OF CONSCIOUSNESS [None]
  - THERAPY NON-RESPONDER [None]
  - URINE OUTPUT DECREASED [None]
